FAERS Safety Report 19690834 (Version 1)
Quarter: 2021Q3

REPORT INFORMATION
  Report Type: Spontaneous
  Country: US (occurrence: US)
  Receive Date: 20210812
  Receipt Date: 20210812
  Transmission Date: 20211014
  Serious: No
  Sender: FDA-Public Use
  Company Number: US-ELI_LILLY_AND_COMPANY-US202108003382

PATIENT
  Sex: Male

DRUGS (5)
  1. SULFAMETHOXAZOLE [Concomitant]
     Active Substance: SULFAMETHOXAZOLE
     Indication: PRODUCT USED FOR UNKNOWN INDICATION
     Dosage: 2 TIMES A DAY FOR 10 DAYS
  2. TALTZ [Suspect]
     Active Substance: IXEKIZUMAB
     Indication: PSORIASIS
     Dosage: UNK UNK, UNKNOWN
     Route: 065
  3. TALTZ [Suspect]
     Active Substance: IXEKIZUMAB
     Indication: PSORIATIC ARTHROPATHY
  4. DOXYCYCLINE. [Concomitant]
     Active Substance: DOXYCYCLINE
     Indication: PRODUCT USED FOR UNKNOWN INDICATION
  5. METHOTREXATE. [Concomitant]
     Active Substance: METHOTREXATE
     Indication: PRODUCT USED FOR UNKNOWN INDICATION
     Dosage: 8 DOSAGE FORM, WEEKLY (1/W)

REACTIONS (5)
  - Skin discolouration [Recovering/Resolving]
  - Cellulitis [Recovering/Resolving]
  - Fall [Recovering/Resolving]
  - Peripheral swelling [Recovering/Resolving]
  - Ligament injury [Recovering/Resolving]
